FAERS Safety Report 22959532 (Version 3)
Quarter: 2024Q3

REPORT INFORMATION
  Report Type: Spontaneous
  Country: US (occurrence: US)
  Receive Date: 20230920
  Receipt Date: 20240917
  Transmission Date: 20241016
  Serious: Yes (Death, Hospitalization)
  Sender: ROCHE
  Company Number: US-ROCHE-3424597

PATIENT
  Age: 65 Year
  Sex: Male

DRUGS (8)
  1. MYCOPHENOLATE MOFETIL [Suspect]
     Active Substance: MYCOPHENOLATE MOFETIL
     Indication: Immunosuppression
     Route: 048
  2. PREDNISONE [Suspect]
     Active Substance: PREDNISONE
     Indication: Immunosuppression
     Route: 065
  3. TACROLIMUS [Suspect]
     Active Substance: TACROLIMUS
     Indication: Immunosuppression
     Route: 065
  4. DEXTROSE [Concomitant]
     Active Substance: DEXTROSE\DEXTROSE MONOHYDRATE
     Route: 042
  5. IVERMECTIN [Concomitant]
     Active Substance: IVERMECTIN
  6. RIFAMPIN [Concomitant]
     Active Substance: RIFAMPIN
  7. CLARITHROMYCIN [Concomitant]
     Active Substance: CLARITHROMYCIN
  8. ETHAMBUTOL [Concomitant]
     Active Substance: ETHAMBUTOL HYDROCHLORIDE

REACTIONS (10)
  - Brain abscess [Fatal]
  - Septic shock [Unknown]
  - Abscess limb [Unknown]
  - Clostridium difficile colitis [Recovering/Resolving]
  - Tenosynovitis [Fatal]
  - Mycobacterium haemophilum infection [Fatal]
  - Osteomyelitis [Fatal]
  - Sepsis syndrome [Recovering/Resolving]
  - Urosepsis [Recovering/Resolving]
  - Cellulitis [Unknown]
